FAERS Safety Report 4295065-4 (Version None)
Quarter: 2004Q1

REPORT INFORMATION
  Report Type: 
  Country: None (occurrence: None)
  Receive Date: 20040213
  Receipt Date: 20040202
  Transmission Date: 20041129
  Serious: Yes (Other)
  Sender: FDA-Public Use
  Company Number: CHPA2004US00607

PATIENT
  Age: 2 Year
  Sex: Female
  Weight: 10 kg

DRUGS (3)
  1. TRIAMINIC SRT [Suspect]
     Indication: NASAL CONGESTION
     Dosage: 1 TAB, BID, ORAL
     Route: 048
     Dates: start: 20031116, end: 20031117
  2. ALBUTEROL SULFATE (NEBULIZER) (SALBUTAMIOL SULFATE) [Concomitant]
  3. CHILDREN'S MOTRIN [Concomitant]

REACTIONS (2)
  - CONVULSION [None]
  - RESPIRATORY ARREST [None]
